FAERS Safety Report 13741971 (Version 1)
Quarter: 2017Q3

REPORT INFORMATION
  Report Type: Spontaneous
  Country: US (occurrence: US)
  Receive Date: 20170711
  Receipt Date: 20170711
  Transmission Date: 20171127
  Serious: Yes (Hospitalization, Other)
  Sender: FDA-Public Use
  Company Number: US-SUPERNUS PHARMACEUTICALS, INC.-2017SUP00166

PATIENT
  Age: 32 Year
  Sex: Female

DRUGS (2)
  1. VIMPAT [Suspect]
     Active Substance: LACOSAMIDE
     Dosage: UNK
     Dates: start: 2017
  2. TROKENDI XR [Suspect]
     Active Substance: TOPIRAMATE
     Indication: SEIZURE
     Dosage: 200 MG, 2X/DAY

REACTIONS (11)
  - Face injury [Unknown]
  - Anxiety [Unknown]
  - Loss of personal independence in daily activities [Unknown]
  - Aura [Unknown]
  - Seizure [Unknown]
  - Syncope [Unknown]
  - Feeling abnormal [Unknown]
  - Fall [Unknown]
  - Drug ineffective [None]
  - Head injury [Unknown]
  - Dysgeusia [Unknown]

NARRATIVE: CASE EVENT DATE: 201704
